FAERS Safety Report 4424345-4 (Version None)
Quarter: 2004Q3

REPORT INFORMATION
  Report Type: 
  Country: None (occurrence: None)
  Receive Date: 20040806
  Receipt Date: 20040806
  Transmission Date: 20050211
  Serious: Yes (Other)
  Sender: FDA-Public Use
  Company Number: None

PATIENT
  Sex: Male
  Weight: 75.4 kg

DRUGS (1)
  1. REGULAR INSULIN [Suspect]
     Indication: HYPERGLYCAEMIA
     Dosage: 2.5 ML HR IV
     Route: 042
     Dates: start: 20040624, end: 20040706

REACTIONS (2)
  - HYPOGLYCAEMIA [None]
  - VASOCONSTRICTION [None]
